FAERS Safety Report 11193925 (Version 1)
Quarter: 2015Q2

REPORT INFORMATION
  Report Type: Spontaneous
  Country: US (occurrence: US)
  Receive Date: 20150616
  Receipt Date: 20150616
  Transmission Date: 20150821
  Serious: No
  Sender: FDA-Public Use
  Company Number: US-LPDUSPRD-20140689

PATIENT
  Sex: Female

DRUGS (1)
  1. CYANOCOBALAMIN INJECTION, USP (0032-25) [Suspect]
     Active Substance: CYANOCOBALAMIN
     Dosage: 1 ML
     Route: 030
     Dates: start: 20140529

REACTIONS (4)
  - Injection site pain [Unknown]
  - Injection site discolouration [Unknown]
  - Muscle tightness [Unknown]
  - Tendon pain [Unknown]

NARRATIVE: CASE EVENT DATE: 201406
